FAERS Safety Report 4919139-7 (Version None)
Quarter: 2006Q1

REPORT INFORMATION
  Report Type: 
  Country: None (occurrence: None)
  Receive Date: 20060216
  Receipt Date: 20060207
  Transmission Date: 20060701
  Serious: Yes (Hospitalization)
  Sender: FDA-Public Use
  Company Number: 2006019008

PATIENT
  Sex: 0

DRUGS (1)
  1. NORVASC [Suspect]
     Indication: HYPERTENSION
     Dosage: 15 MG, ORAL
     Route: 048
     Dates: start: 19990101

REACTIONS (1)
  - RENAL CELL CARCINOMA STAGE UNSPECIFIED [None]
